FAERS Safety Report 13636724 (Version 1)
Quarter: 2017Q2

REPORT INFORMATION
  Report Type: Spontaneous
  Country: US (occurrence: US)
  Receive Date: 20170531
  Receipt Date: 20170531
  Transmission Date: 20170830
  Serious: No
  Sender: FDA-Public Use
  Company Number: US-ASTELLAS-1845287

PATIENT
  Age: 80 Year
  Sex: Female

DRUGS (5)
  1. TARCEVA [Suspect]
     Active Substance: ERLOTINIB HYDROCHLORIDE
     Indication: CARDIAC DISORDER
  2. WARFARIN [Concomitant]
     Active Substance: WARFARIN
     Route: 065
  3. OXYCODONE [Concomitant]
     Active Substance: OXYCODONE
     Route: 065
  4. CARTIA XT [Concomitant]
     Active Substance: DILTIAZEM HYDROCHLORIDE
     Dosage: 120/24HR
     Route: 065
  5. TARCEVA [Suspect]
     Active Substance: ERLOTINIB HYDROCHLORIDE
     Indication: HYPERTENSIVE HEART DISEASE
     Route: 048
     Dates: start: 201510

REACTIONS (2)
  - Rash [Recovered/Resolved]
  - Oral disorder [Recovered/Resolved]

NARRATIVE: CASE EVENT DATE: 201510
